FAERS Safety Report 5475953-3 (Version None)
Quarter: 2007Q4

REPORT INFORMATION
  Report Type: 
  Country: None (occurrence: None)
  Receive Date: 20071001
  Receipt Date: 20070914
  Transmission Date: 20080405
  Serious: Yes (Other)
  Sender: FDA-Public Use
  Company Number: S07-PRT-03624-01

PATIENT
  Age: 88 Year
  Sex: Female

DRUGS (1)
  1. ESCITALOPRAM [Suspect]
     Indication: DEPRESSION
     Dosage: 5 MG QD PO
     Route: 048
     Dates: start: 20070601, end: 20070616

REACTIONS (1)
  - TRANSIENT ISCHAEMIC ATTACK [None]
